FAERS Safety Report 8485618-1 (Version None)
Quarter: 2012Q3

REPORT INFORMATION
  Report Type: 
  Country: None (occurrence: None)
  Receive Date: 20120703
  Receipt Date: 20120627
  Transmission Date: 20120928
  Serious: Yes (Hospitalization)
  Sender: FDA-Public Use
  Company Number: US-JNJFOC-20120700301

PATIENT
  Sex: Male
  Weight: 38.2 kg

DRUGS (9)
  1. FERROUS SULFATE TAB [Concomitant]
     Route: 050
  2. VITAMIN AND MINERAL PRENATAL SUPPLEMENT W/ FOLIC ACID CAP [Concomitant]
  3. REMICADE [Suspect]
     Route: 042
     Dates: start: 20110826
  4. REMICADE [Suspect]
     Route: 042
     Dates: start: 20120616
  5. BUDESONIDE [Concomitant]
  6. FLUTICASONE PROPIONATE [Concomitant]
  7. REMICADE [Suspect]
     Indication: CROHN'S DISEASE
     Route: 042
     Dates: start: 20120615
  8. ALBUTEROL [Concomitant]
  9. LACTOBACILLUS [Concomitant]

REACTIONS (1)
  - CROHN'S DISEASE [None]
